FAERS Safety Report 24660326 (Version 8)
Quarter: 2025Q1

REPORT INFORMATION
  Report Type: Spontaneous
  Country: US (occurrence: US)
  Receive Date: 20241125
  Receipt Date: 20250306
  Transmission Date: 20250409
  Serious: Yes (Other)
  Sender: PFIZER
  Company Number: US-PFIZER INC-202400307591

PATIENT
  Age: 67 Year
  Sex: Female
  Weight: 68.04 kg

DRUGS (5)
  1. TUKYSA [Suspect]
     Active Substance: TUCATINIB
     Indication: Breast cancer metastatic
     Dosage: 150 MILLIGRAM TABLET, TAKE 2 TABLET TWICE A DAY
  2. TUKYSA [Suspect]
     Active Substance: TUCATINIB
     Dosage: FIVE 50MG TABLETS, TWICE DAILY
     Route: 048
     Dates: start: 202109
  3. XELODA [Suspect]
     Active Substance: CAPECITABINE
     Indication: Chemotherapy
     Route: 048
  4. XELODA [Suspect]
     Active Substance: CAPECITABINE
     Route: 048
     Dates: start: 202301
  5. XELODA [Suspect]
     Active Substance: CAPECITABINE
     Route: 048
     Dates: start: 202302

REACTIONS (9)
  - Systemic lupus erythematosus [Not Recovered/Not Resolved]
  - Lichenoid keratosis [Not Recovered/Not Resolved]
  - Drug eruption [Not Recovered/Not Resolved]
  - Hyperbilirubinaemia [Unknown]
  - Muscle spasms [Recovered/Resolved]
  - Fatigue [Not Recovered/Not Resolved]
  - Constipation [Recovered/Resolved]
  - Lymphoedema [Recovering/Resolving]
  - Neoplasm progression [Unknown]

NARRATIVE: CASE EVENT DATE: 20231216
